FAERS Safety Report 6037309-4 (Version None)
Quarter: 2009Q1

REPORT INFORMATION
  Report Type: 
  Country: None (occurrence: None)
  Receive Date: 20090114
  Receipt Date: 20090108
  Transmission Date: 20090719
  Serious: Yes (Other)
  Sender: FDA-Public Use
  Company Number: PHHY2008CA22534

PATIENT
  Sex: Male

DRUGS (3)
  1. ZOMETA [Suspect]
     Indication: METASTASES TO BONE
     Dosage: 4 MG, QMO
     Route: 042
     Dates: start: 20060601, end: 20061201
  2. FOLFOX [Concomitant]
     Dosage: Q2W
  3. AVASTIN [Concomitant]
     Dosage: Q2W

REACTIONS (1)
  - BONE DISORDER [None]
